FAERS Safety Report 15987661 (Version 6)
Quarter: 2019Q2

REPORT INFORMATION
  Report Type: Report from Study
  Country: US (occurrence: US)
  Receive Date: 20190220
  Receipt Date: 20190626
  Transmission Date: 20190711
  Serious: Yes (Death, Hospitalization)
  Sender: FDA-Public Use
  Company Number: US-ACTELION-A-NJ2019-186463

PATIENT
  Age: 73 Year
  Sex: Female
  Weight: 54.42 kg

DRUGS (1)
  1. VELETRI [Suspect]
     Active Substance: EPOPROSTENOL
     Indication: PULMONARY HYPERTENSION
     Dosage: 18 NG/KG, PER MIN
     Route: 042

REACTIONS (8)
  - Dehydration [Unknown]
  - Blood sodium decreased [Unknown]
  - Diarrhoea [Unknown]
  - Blood pressure decreased [Unknown]
  - Death [Fatal]
  - Weight decreased [Unknown]
  - Hip fracture [Unknown]
  - Dizziness [Unknown]

NARRATIVE: CASE EVENT DATE: 20190611
